FAERS Safety Report 17731213 (Version 1)
Quarter: 2020Q2

REPORT INFORMATION
  Report Type: Spontaneous
  Country: EG (occurrence: EG)
  Receive Date: 20200430
  Receipt Date: 20200430
  Transmission Date: 20200714
  Serious: Yes (Hospitalization, Other)
  Sender: FDA-Public Use
  Company Number: EG-MALLINCKRODT-T202001875

PATIENT
  Age: 55 Year
  Sex: Male

DRUGS (7)
  1. OFIRMEV [Suspect]
     Active Substance: ACETAMINOPHEN
     Indication: ANTIPYRESIS
  2. EPANUTIN [Suspect]
     Active Substance: PHENYTOIN SODIUM
     Indication: EPILEPSY
     Dosage: 100 MILLIGRAM
     Route: 042
     Dates: start: 20200115, end: 202001
  3. ROCEPHIN [Suspect]
     Active Substance: CEFTRIAXONE SODIUM
     Indication: ANTIBIOTIC THERAPY
     Dosage: 1 GRAM
     Route: 042
     Dates: start: 20200115, end: 202001
  4. ANTODINE [FAMOTIDINE] [Suspect]
     Active Substance: FAMOTIDINE
     Indication: GASTROOESOPHAGEAL REFLUX DISEASE
     Dosage: 20 MILLIGRAM
     Route: 042
     Dates: start: 20200115
  5. OFIRMEV [Suspect]
     Active Substance: ACETAMINOPHEN
     Indication: ANALGESIC THERAPY
     Dosage: 1 GRAM
     Route: 042
     Dates: start: 20200115
  6. CLEXANE [Suspect]
     Active Substance: ENOXAPARIN SODIUM
     Indication: DEEP VEIN THROMBOSIS
     Dosage: 40 INTERNATIONAL UNIT
     Route: 058
     Dates: start: 20200115, end: 202001
  7. FLAGYL [Suspect]
     Active Substance: METRONIDAZOLE\METRONIDAZOLE HYDROCHLORIDE
     Indication: ANTIBIOTIC THERAPY
     Dosage: 500 MILLIGRAM
     Route: 042
     Dates: start: 20200117

REACTIONS (2)
  - Thrombocytopenia [Recovered/Resolved]
  - Hepatic enzyme increased [Recovered/Resolved]

NARRATIVE: CASE EVENT DATE: 20200116
